FAERS Safety Report 10951240 (Version 1)
Quarter: 2015Q1

REPORT INFORMATION
  Report Type: Report from Study
  Country: JP (occurrence: JP)
  Receive Date: 20150324
  Receipt Date: 20150324
  Transmission Date: 20150721
  Serious: Yes (Other)
  Sender: FDA-Public Use
  Company Number: PHHY2015JP030371

PATIENT
  Age: 53 Year
  Sex: Female
  Weight: 49 kg

DRUGS (24)
  1. SOLU-MEDROL [Concomitant]
     Active Substance: METHYLPREDNISOLONE SODIUM SUCCINATE
     Indication: MULTIPLE SCLEROSIS
     Dosage: 1000 MG, QD
     Route: 065
     Dates: start: 20111012, end: 20111014
  2. SOLU-MEDROL [Concomitant]
     Active Substance: METHYLPREDNISOLONE SODIUM SUCCINATE
     Dosage: 1000 MG, QD
     Route: 065
     Dates: start: 20111021, end: 20111023
  3. MEXITIL [Concomitant]
     Active Substance: MEXILETINE HYDROCHLORIDE
     Indication: HYPOAESTHESIA
     Dosage: 300 MG, QD
     Route: 048
     Dates: start: 20121126
  4. CALONAL [Concomitant]
     Active Substance: ACETAMINOPHEN
     Indication: ARTHRALGIA
     Dosage: 400 MG, QD
     Route: 048
  5. SOLU-MEDROL [Concomitant]
     Active Substance: METHYLPREDNISOLONE SODIUM SUCCINATE
     Dosage: 1000 MG, QD
     Route: 065
     Dates: start: 20111102, end: 20111104
  6. SOLU-MEDROL [Concomitant]
     Active Substance: METHYLPREDNISOLONE SODIUM SUCCINATE
     Dosage: 1000 MG, QD
     Route: 065
     Dates: start: 20120611, end: 20120613
  7. PREDNISOLONE. [Concomitant]
     Active Substance: PREDNISOLONE
     Dosage: 5 MG, UNK
     Route: 065
     Dates: start: 20120614, end: 20120719
  8. AVONEX [Concomitant]
     Active Substance: INTERFERON BETA-1A
     Indication: MULTIPLE SCLEROSIS
     Dosage: 30 UG, PER WEEK
     Route: 030
     Dates: start: 20110223, end: 20110330
  9. GLYCYRRHIZA EXTRACT [Concomitant]
     Active Substance: GLYCYRRHIZA EXTRACT
     Indication: GASTROINTESTINAL DISORDER
     Dosage: 3 G, QD
     Route: 048
  10. URITOS [Concomitant]
     Active Substance: IMIDAFENACIN
     Indication: HYPERTONIC BLADDER
     Dosage: 0.1 MG, QD
     Route: 048
  11. BRUFEN ^ABBOTT^ [Concomitant]
     Active Substance: IBUPROFEN
     Dosage: 100 MG, PRN
     Route: 048
  12. LENDORMIN [Concomitant]
     Active Substance: BROTIZOLAM
     Indication: INSOMNIA
     Dosage: 0.5 MG, QD
     Route: 048
  13. MAGLAX [Concomitant]
     Active Substance: MAGNESIUM OXIDE
     Indication: CONSTIPATION
     Dosage: 990 MG, QD
     Route: 048
  14. SENNOSIDE [Concomitant]
     Active Substance: SENNOSIDES
     Indication: CONSTIPATION
     Dosage: 12 MG, QD
     Route: 048
  15. BRUFEN ^ABBOTT^ [Concomitant]
     Active Substance: IBUPROFEN
     Indication: HEADACHE
     Dosage: 100 MG, QD
     Route: 048
  16. SELBEX [Concomitant]
     Active Substance: TEPRENONE
     Indication: GASTROINTESTINAL DISORDER
     Dosage: 150 MG, QD
     Route: 048
  17. BETAFERON [Concomitant]
     Active Substance: INTERFERON BETA-1B
     Indication: MULTIPLE SCLEROSIS
     Dosage: 400 MG, QID
     Route: 058
     Dates: start: 200109, end: 20120807
  18. SOLU-MEDROL [Concomitant]
     Active Substance: METHYLPREDNISOLONE SODIUM SUCCINATE
     Dosage: 1000 MG, QD
     Route: 065
     Dates: start: 20120702, end: 20120704
  19. MARZULENE S [Concomitant]
     Active Substance: GLUTAMINE\SODIUM GUALENATE
     Indication: GASTROINTESTINAL DISORDER
     Dosage: 1.5 G, QD
     Route: 048
  20. GILENYA [Suspect]
     Active Substance: FINGOLIMOD HYDROCHLORIDE
     Indication: MULTIPLE SCLEROSIS
     Dosage: 0.5 MG, QD
     Route: 048
     Dates: start: 20120808
  21. MIYA-BM [Concomitant]
     Active Substance: CLOSTRIDIUM BUTYRICUM SPORES STRAIN M-55
     Indication: GASTROINTESTINAL DISORDER
     Dosage: 3 G, QD
     Route: 048
  22. SHAKUYAKUKANZOTO [Concomitant]
     Active Substance: HERBALS
     Indication: MUSCLE SPASTICITY
     Dosage: PRN, 1 PACK
     Route: 048
  23. PREDNISOLONE. [Concomitant]
     Active Substance: PREDNISOLONE
     Indication: MULTIPLE SCLEROSIS
     Dosage: 50 MG, UNK
     Route: 065
     Dates: start: 20111015, end: 20111122
  24. ALLEGRA [Concomitant]
     Active Substance: FEXOFENADINE HYDROCHLORIDE
     Indication: RHINITIS ALLERGIC
     Dosage: 120 MG, QD
     Route: 048
     Dates: start: 20130111

REACTIONS (3)
  - Hypoaesthesia [Recovered/Resolved]
  - Lymphocyte count decreased [Not Recovered/Not Resolved]
  - Gastrointestinal disorder [Recovered/Resolved]

NARRATIVE: CASE EVENT DATE: 20120824
